FAERS Safety Report 8298874-X (Version None)
Quarter: 2012Q2

REPORT INFORMATION
  Report Type: 
  Country: None (occurrence: None)
  Receive Date: 20120419
  Receipt Date: 20120410
  Transmission Date: 20120825
  Serious: Yes (Death)
  Sender: FDA-Public Use
  Company Number: IT-TEVA-333287ISR

PATIENT
  Sex: Male

DRUGS (4)
  1. CARMUSTINA [Suspect]
     Indication: B-CELL LYMPHOMA
     Dosage: 500 MILLIGRAM;
     Route: 042
     Dates: start: 20120210, end: 20120210
  2. CYTARABINE [Suspect]
     Indication: B-CELL LYMPHOMA
     Dosage: 668 MILLIGRAM;
     Route: 042
     Dates: start: 20120211, end: 20120214
  3. ETOPOSIDE [Suspect]
     Indication: B-CELL LYMPHOMA
     Dosage: 167 MILLIGRAM;
     Route: 042
     Dates: start: 20120211, end: 20120214
  4. ALKERAN [Suspect]
     Indication: B-CELL LYMPHOMA
     Dosage: 234 MILLIGRAM;
     Route: 042
     Dates: start: 20120215, end: 20120215

REACTIONS (1)
  - SEPTIC SHOCK [None]
